FAERS Safety Report 8223407-3 (Version None)
Quarter: 2012Q1

REPORT INFORMATION
  Report Type: 
  Country: None (occurrence: None)
  Receive Date: 20120316
  Receipt Date: 20120305
  Transmission Date: 20120608
  Serious: Yes (Other)
  Sender: FDA-Public Use
  Company Number: 2012P1009031

PATIENT
  Age: 28 Year
  Sex: Female

DRUGS (2)
  1. CEFUROXIME [Suspect]
     Indication: UPPER RESPIRATORY TRACT INFECTION
     Dosage: 250 MG;TID
  2. CETIRIZINE [Concomitant]

REACTIONS (8)
  - PALPITATIONS [None]
  - SINUS TACHYCARDIA [None]
  - RESTLESSNESS [None]
  - PANIC ATTACK [None]
  - ANXIETY [None]
  - POLLAKIURIA [None]
  - TREMOR [None]
  - DYSPNOEA [None]
